FAERS Safety Report 19436294 (Version 1)
Quarter: 2021Q2

REPORT INFORMATION
  Report Type: Spontaneous
  Country: GB (occurrence: GB)
  Receive Date: 20210618
  Receipt Date: 20210618
  Transmission Date: 20210717
  Serious: Yes (Hospitalization, Congenital Anomaly)
  Sender: FDA-Public Use
  Company Number: GB-MYLANLABS-2021M1034948

PATIENT
  Sex: Female

DRUGS (2)
  1. LABETALOL [Suspect]
     Active Substance: LABETALOL\LABETALOL HYDROCHLORIDE
     Indication: ESSENTIAL HYPERTENSION
     Dosage: 200 MILLIGRAM, BID
     Route: 064
  2. VALSARTAN. [Suspect]
     Active Substance: VALSARTAN
     Indication: ESSENTIAL HYPERTENSION
     Dosage: UNK
     Route: 064

REACTIONS (19)
  - Patent ductus arteriosus [Unknown]
  - Cardio-respiratory distress [Recovered/Resolved]
  - Foetal growth restriction [Recovered/Resolved]
  - Hypoalbuminaemia [Unknown]
  - Extremity contracture [Recovered/Resolved]
  - Anaemia [Unknown]
  - Ventricular septal defect [Recovered/Resolved]
  - Microcephaly [Unknown]
  - Hypertension [Recovered/Resolved]
  - Atrial septal defect [Recovering/Resolving]
  - Metabolic acidosis [Recovering/Resolving]
  - Chronic kidney disease [Recovered/Resolved]
  - Oligohydramnios [Unknown]
  - Renal failure [Recovered/Resolved]
  - Foetal exposure during pregnancy [Recovered/Resolved]
  - Intestinal malrotation [Unknown]
  - Congenital tricuspid valve incompetence [Unknown]
  - Failure to thrive [Recovered/Resolved]
  - Premature baby [Unknown]
